FAERS Safety Report 5090364-0 (Version None)
Quarter: 2006Q3

REPORT INFORMATION
  Report Type: 
  Country: None (occurrence: None)
  Receive Date: 20060828
  Receipt Date: 20060731
  Transmission Date: 20061208
  Serious: No
  Sender: FDA-Public Use
  Company Number: US-GLAXOSMITHKLINE-A0614184A

PATIENT
  Age: 45 Year
  Sex: Male

DRUGS (2)
  1. WELLBUTRIN XL [Suspect]
     Indication: DEPRESSION
     Dosage: 150MG PER DAY
     Route: 048
  2. UNKNOWN MEDICATION [Concomitant]

REACTIONS (4)
  - ABNORMAL SENSATION IN EYE [None]
  - DISORIENTATION [None]
  - HEADACHE [None]
  - IRRITABILITY [None]
